FAERS Safety Report 8429507 (Version 2)
Quarter: 2013Q1

REPORT INFORMATION
  Report Type: Report from Study
  Country: FR (occurrence: FR)
  Receive Date: 20120227
  Receipt Date: 20130128
  Transmission Date: 20140127
  Serious: Yes (Hospitalization, Other)
  Sender: FDA-Public Use
  Company Number: PHHO2012FR001584

PATIENT
  Age: 11 Year
  Sex: Female
  Weight: 30.4 kg

DRUGS (7)
  1. METHOTREXATE [Suspect]
     Indication: BONE SARCOMA
     Dosage: 13.6 G, UNK
     Route: 042
     Dates: start: 20110726
  2. NO TREATMENT RECEIVED [Suspect]
     Dosage: NO TREATMENT
  3. ETOPOSIDE [Concomitant]
     Indication: BONE SARCOMA
     Dosage: 84 MG, UNK
     Route: 042
     Dates: start: 20110816
  4. IFOSFAMIDE [Concomitant]
     Indication: BONE SARCOMA
     Dosage: 3.4 MG, UNK
     Route: 042
     Dates: start: 20110816
  5. ZOPHREN [Concomitant]
     Indication: PROPHYLAXIS OF NAUSEA AND VOMITING
     Dosage: UNK
     Route: 048
     Dates: start: 20110726
  6. FORLAX [Concomitant]
     Indication: CONSTIPATION PROPHYLAXIS
     Dosage: UNK
     Route: 048
     Dates: start: 20111128
  7. ELVORINE [Concomitant]
     Indication: PROPHYLAXIS
     Dosage: UNK
     Route: 048
     Dates: start: 20110726

REACTIONS (2)
  - Cellulitis [Not Recovered/Not Resolved]
  - Malnutrition [Recovered/Resolved]
